FAERS Safety Report 8379311-3 (Version None)
Quarter: 2012Q2

REPORT INFORMATION
  Report Type: 
  Country: None (occurrence: None)
  Receive Date: 20120523
  Receipt Date: 20120516
  Transmission Date: 20120825
  Serious: Yes (Other)
  Sender: FDA-Public Use
  Company Number: PHHY2012FR043106

PATIENT
  Sex: Male

DRUGS (3)
  1. REBETOL [Suspect]
  2. CLOZAPINE [Suspect]
  3. VIRAFERON [Suspect]

REACTIONS (3)
  - HEPATITIS C [None]
  - WHITE BLOOD CELL COUNT DECREASED [None]
  - NEUTROPHIL COUNT DECREASED [None]
